FAERS Safety Report 9514947 (Version 1)
Quarter: 2013Q3

REPORT INFORMATION
  Report Type: Spontaneous
  Country: US (occurrence: US)
  Receive Date: 20130911
  Receipt Date: 20130911
  Transmission Date: 20140515
  Serious: No
  Sender: FDA-Public Use
  Company Number: US-009507513-1308USA013423

PATIENT
  Age: 22 Year
  Sex: Female
  Weight: 122.45 kg

DRUGS (1)
  1. NEXPLANON [Suspect]
     Indication: CONTRACEPTION
     Dosage: 3 YEARS
     Route: 059
     Dates: start: 20121120

REACTIONS (3)
  - Device kink [Unknown]
  - Device breakage [Unknown]
  - Implant site reaction [Unknown]
